FAERS Safety Report 8397967-6 (Version None)
Quarter: 2012Q2

REPORT INFORMATION
  Report Type: 
  Country: None (occurrence: None)
  Receive Date: 20120531
  Receipt Date: 20120524
  Transmission Date: 20120825
  Serious: Yes (Other)
  Sender: FDA-Public Use
  Company Number: US-JNJFOC-20120519167

PATIENT

DRUGS (2)
  1. NSAIDS [Suspect]
     Indication: ILL-DEFINED DISORDER
     Route: 048
  2. XARELTO [Suspect]
     Indication: PRODUCT USED FOR UNKNOWN INDICATION
     Route: 048

REACTIONS (1)
  - RENAL FAILURE [None]
